FAERS Safety Report 7282029-1 (Version None)
Quarter: 2011Q1

REPORT INFORMATION
  Report Type: 
  Country: None (occurrence: None)
  Receive Date: 20110208
  Receipt Date: 20101231
  Transmission Date: 20110831
  Serious: Yes (Hospitalization)
  Sender: FDA-Public Use
  Company Number: PHHY2010BE90581

PATIENT
  Age: 57 Year
  Sex: Male

DRUGS (3)
  1. MYCOPHENOLATE MOFETIL [Suspect]
     Indication: IMMUNOSUPPRESSION
  2. TACROLIMUS [Suspect]
  3. RIFAMPICIN [Concomitant]
     Dosage: UNK
     Dates: end: 20070401

REACTIONS (9)
  - GASTROINTESTINAL TOXICITY [None]
  - PRODUCTIVE COUGH [None]
  - LUNG INFILTRATION [None]
  - DYSPNOEA EXERTIONAL [None]
  - PYREXIA [None]
  - NEUROPATHY PERIPHERAL [None]
  - RHODOCOCCUS INFECTION [None]
  - PNEUMONIA NECROTISING [None]
  - LUNG CONSOLIDATION [None]
